FAERS Safety Report 4645299-1 (Version None)
Quarter: 2005Q2

REPORT INFORMATION
  Report Type: 
  Country: None (occurrence: None)
  Receive Date: 20050331
  Receipt Date: 20041216
  Transmission Date: 20051028
  Serious: No
  Sender: FDA-Public Use
  Company Number: 04P-163-0255899-00

PATIENT
  Age: 64 Year
  Sex: Female
  Weight: 72.5755 kg

DRUGS (15)
  1. HUMIRA [Suspect]
     Indication: RHEUMATOID ARTHRITIS
     Dosage: 40 MG, 3 IN 1 M, SUBCUTANEOUS; SEE IMAGE
     Route: 058
     Dates: start: 20031126, end: 20040201
  2. HUMIRA [Suspect]
     Indication: RHEUMATOID ARTHRITIS
     Dosage: 40 MG, 3 IN 1 M, SUBCUTANEOUS; SEE IMAGE
     Route: 058
     Dates: start: 20040201, end: 20040201
  3. HUMIRA [Suspect]
     Indication: RHEUMATOID ARTHRITIS
     Dosage: 40 MG, 3 IN 1 M, SUBCUTANEOUS; SEE IMAGE
     Route: 058
     Dates: start: 20040301, end: 20041101
  4. HUMIRA [Suspect]
     Indication: RHEUMATOID ARTHRITIS
     Dosage: 40 MG, 3 IN 1 M, SUBCUTANEOUS; SEE IMAGE
     Route: 058
     Dates: start: 20041101
  5. LANSOPRAZOLE [Concomitant]
  6. LEVOTHYROXINE SODIUM [Concomitant]
  7. MULTIVITAMIN [Concomitant]
  8. FISH OIL [Concomitant]
  9. TOCOPHEROL CONCENTRATE CAP [Concomitant]
  10. ASCORBIC ACID [Concomitant]
  11. MULTI-VITAMINS [Concomitant]
  12. CYANOCOBALAMIN [Concomitant]
  13. FOLIC ACID [Concomitant]
  14. FISH OIL [Concomitant]
  15. GOLD [Concomitant]

REACTIONS (9)
  - DIARRHOEA [None]
  - DIPLOPIA [None]
  - EXTRAOCULAR MUSCLE PARESIS [None]
  - HAEMATOCRIT DECREASED [None]
  - HAEMOGLOBIN DECREASED [None]
  - NASOPHARYNGITIS [None]
  - NAUSEA [None]
  - SINUS DISORDER [None]
  - VOMITING [None]
